FAERS Safety Report 16915228 (Version 1)
Quarter: 2019Q4

REPORT INFORMATION
  Report Type: Spontaneous
  Country: US (occurrence: US)
  Receive Date: 20191014
  Receipt Date: 20191014
  Transmission Date: 20200122
  Serious: No
  Sender: FDA-Public Use
  Company Number: US-TEVA-2019-US-1123281

PATIENT
  Sex: Female

DRUGS (1)
  1. PERMETHRIN 5% CRM [Suspect]
     Active Substance: PERMETHRIN
     Indication: ACARODERMATITIS
     Route: 061
     Dates: start: 201908

REACTIONS (1)
  - Drug ineffective [Unknown]
